FAERS Safety Report 4818759-8 (Version None)
Quarter: 2005Q4

REPORT INFORMATION
  Report Type: 
  Country: None (occurrence: None)
  Receive Date: 20051101
  Receipt Date: 20051017
  Transmission Date: 20060501
  Serious: Yes (Disabling)
  Sender: FDA-Public Use
  Company Number: 2005_000058

PATIENT
  Age: 58 Year
  Sex: Female
  Weight: 81 kg

DRUGS (8)
  1. DEPOCYT [Suspect]
     Indication: BREAST CANCER
     Dosage: 50 MG; X1; INTRATHECAL
     Route: 037
     Dates: start: 20040326, end: 20040826
  2. DEPOCYT [Suspect]
     Indication: METASTASES TO MENINGES
     Dosage: 50 MG; X1; INTRATHECAL
     Route: 037
     Dates: start: 20040326, end: 20040826
  3. SYNTHROID [Concomitant]
  4. FOSAMAX [Concomitant]
  5. MOTRIN [Concomitant]
  6. TYLENOL (CAPLET) [Concomitant]
  7. FLEXERIL [Concomitant]
  8. ARIMIDEX [Concomitant]

REACTIONS (7)
  - ARACHNOIDITIS [None]
  - FAECAL INCONTINENCE [None]
  - GAIT DISTURBANCE [None]
  - HYPOAESTHESIA [None]
  - PAIN [None]
  - PARAPLEGIA [None]
  - PERINEURIAL CYST [None]
